FAERS Safety Report 9475448 (Version 8)
Quarter: 2014Q1

REPORT INFORMATION
  Report Type: Report from Study
  Country: CA (occurrence: CA)
  Receive Date: 20130826
  Receipt Date: 20140206
  Transmission Date: 20141002
  Serious: Yes (Hospitalization, Other)
  Sender: FDA-Public Use
  Company Number: CA-ROCHE-1231808

PATIENT
  Age: 38 Year
  Sex: Female
  Weight: 39 kg

DRUGS (9)
  1. ACTEMRA [Suspect]
     Indication: RHEUMATOID ARTHRITIS
     Route: 042
     Dates: start: 20130528
  2. ACTEMRA [Suspect]
     Route: 042
     Dates: start: 20130810
  3. ACTEMRA [Suspect]
     Route: 042
     Dates: start: 20131104
  4. SALOFALK [Suspect]
     Indication: CROHN^S DISEASE
     Route: 065
  5. GABAPENTIN [Concomitant]
  6. PREDNISONE [Concomitant]
  7. PANTOPRAZOLE [Concomitant]
  8. INDOMETHACIN [Concomitant]
  9. CELEBREX [Concomitant]

REACTIONS (16)
  - Insomnia [Recovered/Resolved]
  - Fatigue [Recovered/Resolved]
  - White blood cell count decreased [Unknown]
  - Rectal haemorrhage [Recovered/Resolved]
  - Crohn^s disease [Not Recovered/Not Resolved]
  - Diarrhoea [Unknown]
  - Abdominal pain [Recovered/Resolved]
  - Abdominal pain [Recovered/Resolved]
  - Nausea [Recovered/Resolved]
  - Gastrooesophageal reflux disease [Recovered/Resolved]
  - Abdominal distension [Recovered/Resolved]
  - Constipation [Recovered/Resolved]
  - Arthralgia [Not Recovered/Not Resolved]
  - Fatigue [Not Recovered/Not Resolved]
  - Alopecia [Recovered/Resolved]
  - Drug effect decreased [Unknown]
